FAERS Safety Report 12254489 (Version 2)
Quarter: 2019Q4

REPORT INFORMATION
  Report Type: Spontaneous
  Country: US (occurrence: US)
  Receive Date: 20160411
  Receipt Date: 20191023
  Transmission Date: 20200122
  Serious: Yes (Death, Other)
  Sender: FDA-Public Use
  Company Number: US-PFIZER INC-2016204846

PATIENT
  Age: 69 Year
  Sex: Male

DRUGS (3)
  1. VIAGRA [Suspect]
     Active Substance: SILDENAFIL CITRATE
     Dosage: 100 MG DECREASED TO 1/2 TABLET AS NEEDED APPROXIMATELY ONCE A WEEK
     Route: 048
     Dates: start: 20030903, end: 20050402
  2. VIAGRA [Suspect]
     Active Substance: SILDENAFIL CITRATE
     Dosage: 100 MG DECREASED TO 1/2 TABLET AS NEEDED APPROXIMATELY ONCE A WEEK
     Route: 048
     Dates: start: 20060510, end: 20060510
  3. VIAGRA [Suspect]
     Active Substance: SILDENAFIL CITRATE
     Indication: ERECTILE DYSFUNCTION
     Dosage: 100 MG DECREASED TO 1/2 TABLET AS NEEDED APPROXIMATELY ONCE A WEEK
     Route: 048
     Dates: start: 20000930, end: 20020920

REACTIONS (2)
  - Choroid melanoma [Fatal]
  - Metastatic malignant melanoma [Fatal]

NARRATIVE: CASE EVENT DATE: 20030109
